FAERS Safety Report 9761543 (Version 1)
Quarter: 2013Q4

REPORT INFORMATION
  Report Type: Spontaneous
  Country: US (occurrence: US)
  Receive Date: 20131216
  Receipt Date: 20131216
  Transmission Date: 20140711
  Serious: No
  Sender: FDA-Public Use
  Company Number: US-ABBVIE-13P-163-1066219-00

PATIENT
  Age: 57 Year
  Sex: Female
  Weight: 65.83 kg

DRUGS (3)
  1. PROGESTERONE [Suspect]
     Indication: MENOPAUSAL SYMPTOMS PROPHYLAXIS
     Route: 048
     Dates: start: 20130309, end: 20130313
  2. DARVON [Concomitant]
     Indication: PAIN
  3. PROGESTERONE (NEVA) [Concomitant]
     Indication: MENOPAUSAL SYMPTOMS PROPHYLAXIS
     Route: 048
     Dates: start: 20130205, end: 20130308

REACTIONS (2)
  - Headache [Recovered/Resolved]
  - Nausea [Recovered/Resolved]
